FAERS Safety Report 17456803 (Version 1)
Quarter: 2020Q1

REPORT INFORMATION
  Report Type: Report from Study
  Country: CN (occurrence: CN)
  Receive Date: 20200225
  Receipt Date: 20200225
  Transmission Date: 20200409
  Serious: Yes (Other)
  Sender: FDA-Public Use
  Company Number: CN-BAYER-2020-029844

PATIENT
  Age: 51 Year
  Sex: Male

DRUGS (2)
  1. OXALIPLATIN. [Concomitant]
     Active Substance: OXALIPLATIN
     Indication: HEPATOCELLULAR CARCINOMA
     Dosage: 85 MG/M2, EVERY 3 WEEKS VIA REPETITIVE CATHETERIZATION
     Dates: start: 201802, end: 201804
  2. SORAFENIB [Suspect]
     Active Substance: SORAFENIB
     Indication: HEPATOCELLULAR CARCINOMA
     Dosage: 400 MG, BID
     Route: 048
     Dates: start: 20180222, end: 201804

REACTIONS (5)
  - Tumour rupture [None]
  - Ascites [None]
  - Gastrointestinal haemorrhage [None]
  - Acute abdomen [None]
  - Tumour haemorrhage [None]

NARRATIVE: CASE EVENT DATE: 2018
